FAERS Safety Report 9641842 (Version 3)
Quarter: 2014Q1

REPORT INFORMATION
  Report Type: Spontaneous
  Country: US (occurrence: US)
  Receive Date: 20131023
  Receipt Date: 20140304
  Transmission Date: 20141002
  Serious: Yes (Hospitalization)
  Sender: FDA-Public Use
  Company Number: US-B.I. PHARMACEUTICALS,INC./RIDGEFIELD-2013-BI-33492BP

PATIENT
  Sex: Male
  Weight: 77.11 kg

DRUGS (10)
  1. PRADAXA [Suspect]
     Indication: ATRIAL FIBRILLATION
     Dosage: 300 MG
     Route: 065
     Dates: start: 20110626, end: 20110629
  2. METOPROLOL [Concomitant]
     Dosage: 50 MG
     Route: 048
  3. UROXATRAL [Concomitant]
     Indication: BENIGN PROSTATIC HYPERPLASIA
     Dosage: 10 MG
     Route: 048
  4. FISH OIL [Concomitant]
     Route: 065
  5. MEN^S ONE-A-DAY [Concomitant]
     Route: 065
  6. D3 [Concomitant]
     Route: 065
  7. PROSTATE [Concomitant]
     Route: 065
  8. ESTER C [Concomitant]
     Route: 065
  9. SELENIUM [Concomitant]
     Route: 065
  10. RED YEAST RICE [Concomitant]
     Route: 065

REACTIONS (1)
  - Lower gastrointestinal haemorrhage [Recovered/Resolved]
